FAERS Safety Report 4558700-9 (Version None)
Quarter: 2005Q1

REPORT INFORMATION
  Report Type: 
  Country: None (occurrence: None)
  Receive Date: 20050119
  Receipt Date: 20050107
  Transmission Date: 20050727
  Serious: Yes (Other)
  Sender: FDA-Public Use
  Company Number: 001-0981-M0008055

PATIENT
  Age: 76 Year
  Sex: Male
  Weight: 83.9154 kg

DRUGS (8)
  1. ATORVASTATIN (ATORVASTATIN) [Suspect]
     Indication: CORONARY ARTERY DISEASE
     Dosage: SEE IMAGE
     Route: 048
     Dates: start: 19990708, end: 19990903
  2. ATORVASTATIN (ATORVASTATIN) [Suspect]
     Indication: CORONARY ARTERY DISEASE
     Dosage: SEE IMAGE
     Route: 048
     Dates: start: 19990904
  3. NITROGLYCERIN [Concomitant]
  4. AMLODIPINE [Concomitant]
  5. TOCOPHEROL (TOCOPHEROL) [Concomitant]
  6. ASCORBIC ACID [Concomitant]
  7. BETACAROTENE (BETACAROTENE) [Concomitant]
  8. ASPIRIN [Concomitant]

REACTIONS (1)
  - PROSTATE CANCER [None]
